FAERS Safety Report 5739517-6 (Version None)
Quarter: 2008Q2

REPORT INFORMATION
  Report Type: 
  Country: None (occurrence: None)
  Receive Date: 20080515
  Receipt Date: 20080512
  Transmission Date: 20081010
  Serious: Yes (Other)
  Sender: FDA-Public Use
  Company Number: ES-BOEHRINGER INGELHEIM GMBH, GERMANY-2008-BP-07470RO

PATIENT
  Age: 31 Year
  Sex: Female

DRUGS (5)
  1. CYCLOPHOSPHAMIDE [Suspect]
     Indication: BREAST CANCER STAGE II
  2. FLUOROURACIL [Suspect]
     Indication: BREAST CANCER STAGE II
  3. DOXORUBICIN HCL [Suspect]
     Indication: BREAST CANCER STAGE II
  4. TRASTUZUMAB [Suspect]
     Indication: BREAST CANCER STAGE II
  5. TRASTUZUMAB [Suspect]

REACTIONS (2)
  - CYTOLYTIC HEPATITIS [None]
  - HEPATOTOXICITY [None]
